FAERS Safety Report 16427493 (Version 2)
Quarter: 2019Q3

REPORT INFORMATION
  Report Type: Report from Study
  Country: US (occurrence: US)
  Receive Date: 20190613
  Receipt Date: 20190926
  Transmission Date: 20191004
  Serious: Yes (Hospitalization)
  Sender: FDA-Public Use
  Company Number: US-CELGENEUS-USA-20190602747

PATIENT
  Age: 70 Year
  Sex: Male
  Weight: 81.5 kg

DRUGS (12)
  1. ABRAXANE [Suspect]
     Active Substance: PACLITAXEL
     Dosage: 251 MILLIGRAM
     Route: 041
     Dates: start: 20190520
  2. OXALIPLATIN. [Suspect]
     Active Substance: OXALIPLATIN
     Dosage: 142 MILLIGRAM
     Route: 041
     Dates: start: 20190520
  3. LEUCOVORIN. [Suspect]
     Active Substance: LEUCOVORIN
     Indication: PANCREATIC CARCINOMA METASTATIC
     Dosage: 836 MILLIGRAM
     Route: 041
     Dates: start: 20190410
  4. OXALIPLATIN. [Suspect]
     Active Substance: OXALIPLATIN
     Indication: PANCREATIC CARCINOMA METASTATIC
     Dosage: 251 MILLIGRAM
     Route: 041
     Dates: start: 20190410
  5. OXALIPLATIN. [Suspect]
     Active Substance: OXALIPLATIN
     Dosage: 142 MILLIGRAM
     Route: 041
     Dates: start: 20190504
  6. LEUCOVORIN. [Suspect]
     Active Substance: LEUCOVORIN
     Dosage: 836 MILLIGRAM
     Route: 041
     Dates: start: 20190520
  7. 5-FU [Suspect]
     Active Substance: FLUOROURACIL
     Dosage: 4013 MILLIGRAM
     Route: 041
     Dates: start: 20190504
  8. 5-FU [Suspect]
     Active Substance: FLUOROURACIL
     Dosage: 4013 MILLIGRAM
     Route: 041
     Dates: start: 20190520
  9. ABRAXANE [Suspect]
     Active Substance: PACLITAXEL
     Indication: PANCREATIC CARCINOMA METASTATIC
     Dosage: 313.5 MILLIGRAM
     Route: 041
     Dates: start: 20190410
  10. LEUCOVORIN. [Suspect]
     Active Substance: LEUCOVORIN
     Dosage: 836 MILLIGRAM
     Route: 041
     Dates: start: 20190504
  11. 5-FU [Suspect]
     Active Substance: FLUOROURACIL
     Indication: PANCREATIC CARCINOMA METASTATIC
     Dosage: 5016 MILLIGRAM
     Route: 041
     Dates: start: 20190410
  12. ABRAXANE [Suspect]
     Active Substance: PACLITAXEL
     Dosage: 251 MILLIGRAM
     Route: 041
     Dates: start: 20190504

REACTIONS (3)
  - Pulmonary embolism [Not Recovered/Not Resolved]
  - Neoplasm [Not Recovered/Not Resolved]
  - Sepsis [Recovered/Resolved]

NARRATIVE: CASE EVENT DATE: 20190529
